FAERS Safety Report 16724953 (Version 1)
Quarter: 2019Q3

REPORT INFORMATION
  Report Type: Spontaneous
  Country: US (occurrence: US)
  Receive Date: 20190704
  Receipt Date: 20190704
  Transmission Date: 20191005
  Serious: No
  Sender: FDA-Public Use
  Company Number: None

PATIENT
  Age: 84 Year
  Sex: Male
  Weight: 92 kg

DRUGS (1)
  1. SEMAGLUTIDE [Suspect]
     Active Substance: SEMAGLUTIDE
     Dosage: ?          OTHER DOSE:0.5MG;?
     Route: 058
     Dates: start: 20190514, end: 20190612

REACTIONS (1)
  - Constipation [None]

NARRATIVE: CASE EVENT DATE: 20190612
